FAERS Safety Report 7455175-7 (Version None)
Quarter: 2011Q2

REPORT INFORMATION
  Report Type: 
  Country: None (occurrence: None)
  Receive Date: 20110503
  Receipt Date: 20110420
  Transmission Date: 20111010
  Serious: Yes (Hospitalization)
  Sender: FDA-Public Use
  Company Number: PHHY2011US35494

PATIENT
  Sex: Male
  Weight: 56.25 kg

DRUGS (1)
  1. EXJADE [Suspect]
     Indication: IRON OVERLOAD
     Dosage: 500 MG, DAILY
     Route: 048
     Dates: start: 20091001

REACTIONS (3)
  - LIVER DISORDER [None]
  - BLOOD BILIRUBIN INCREASED [None]
  - HAEMOLYSIS [None]
